FAERS Safety Report 5169300-4 (Version None)
Quarter: 2006Q4

REPORT INFORMATION
  Report Type: 
  Country: None (occurrence: None)
  Receive Date: 20061201
  Receipt Date: 20061017
  Transmission Date: 20070319
  Serious: Yes (Other)
  Sender: FDA-Public Use
  Company Number: 2006SP000557

PATIENT
  Age: 55 Year
  Sex: Male

DRUGS (3)
  1. TEMODAL [Suspect]
     Indication: GLIOBLASTOMA MULTIFORME
     Dosage: 100 MG/M2; QD
  2. DEXAMETHASONE (CON.) [Concomitant]
  3. RADIATION THERAPY (CON.) [Concomitant]

REACTIONS (17)
  - ASTHENIA [None]
  - CENTRAL NERVOUS SYSTEM ABSCESS [None]
  - DRUG TOLERANCE DECREASED [None]
  - GENITAL RASH [None]
  - HEADACHE [None]
  - HUMAN HERPESVIRUS 8 INFECTION [None]
  - KAPOSI'S SARCOMA [None]
  - LEUKOPENIA [None]
  - LISTERIOSIS [None]
  - LYMPHOPENIA [None]
  - NAUSEA [None]
  - NEUROLOGICAL SYMPTOM [None]
  - NEUTROPENIA [None]
  - NODULE [None]
  - OPPORTUNISTIC INFECTION [None]
  - PNEUMOCYSTIS JIROVECI PNEUMONIA [None]
  - PYREXIA [None]
